FAERS Safety Report 7504569-X (Version None)
Quarter: 2011Q2

REPORT INFORMATION
  Report Type: 
  Country: None (occurrence: None)
  Receive Date: 20110525
  Receipt Date: 20101005
  Transmission Date: 20111010
  Serious: No
  Sender: FDA-Public Use
  Company Number: US-KINGPHARMUSA00001-K201001246

PATIENT
  Sex: Female

DRUGS (2)
  1. TAPAZOLE [Suspect]
     Dosage: 10 MG, UNK
     Route: 048
  2. TAPAZOLE [Suspect]
     Dosage: 5 MG, UNK
     Route: 048

REACTIONS (1)
  - HEADACHE [None]
